FAERS Safety Report 18147904 (Version 4)
Quarter: 2021Q4

REPORT INFORMATION
  Report Type: Report from Study
  Country: JP (occurrence: JP)
  Receive Date: 20200813
  Receipt Date: 20211012
  Transmission Date: 20220303
  Serious: Yes (Hospitalization)
  Sender: FDA-Public Use
  Company Number: JP-JNJFOC-20200811290

PATIENT
  Age: 41 Year
  Sex: Female
  Weight: 67.9 kg

DRUGS (12)
  1. TREMFYA [Suspect]
     Active Substance: GUSELKUMAB
     Indication: Palmoplantar pustulosis
     Route: 058
     Dates: start: 20200702, end: 20200702
  2. TREMFYA [Suspect]
     Active Substance: GUSELKUMAB
     Route: 058
     Dates: start: 20200730, end: 20200730
  3. TREMFYA [Suspect]
     Active Substance: GUSELKUMAB
     Route: 058
     Dates: start: 20200924, end: 20200924
  4. TREMFYA [Suspect]
     Active Substance: GUSELKUMAB
     Route: 058
     Dates: start: 20201203, end: 20201203
  5. BETAMETHASONE\CALCIPOTRIENE [Concomitant]
     Active Substance: BETAMETHASONE\CALCIPOTRIENE
     Indication: Palmoplantar pustulosis
     Route: 061
  6. GLYCOSAMINOGLYCANS [Concomitant]
     Active Substance: GLYCOSAMINOGLYCANS
     Indication: Prophylaxis
     Route: 061
     Dates: start: 20201105
  7. GLYCOSAMINOGLYCANS [Concomitant]
     Active Substance: GLYCOSAMINOGLYCANS
     Indication: Palmoplantar pustulosis
  8. PETROLATUM [Concomitant]
     Active Substance: PETROLATUM
     Indication: Prophylaxis
     Route: 065
  9. PETROLATUM [Concomitant]
     Active Substance: PETROLATUM
     Indication: Palmoplantar pustulosis
  10. CEFACLOR [Concomitant]
     Active Substance: CEFACLOR
     Indication: Prophylaxis
     Route: 048
     Dates: start: 20200724, end: 20200808
  11. MYSER [DIFLUPREDNATE] [Concomitant]
     Indication: Palmoplantar pustulosis
     Route: 061
  12. ALESION [Concomitant]
     Active Substance: EPINASTINE HYDROCHLORIDE
     Indication: Palmoplantar pustulosis
     Route: 048
     Dates: start: 20201105

REACTIONS (1)
  - Cellulitis [Recovered/Resolved]

NARRATIVE: CASE EVENT DATE: 20200717
